FAERS Safety Report 14892549 (Version 1)
Quarter: 2018Q2

REPORT INFORMATION
  Report Type: Spontaneous
  Country: US (occurrence: US)
  Receive Date: 20180514
  Receipt Date: 20180514
  Transmission Date: 20180711
  Serious: No
  Sender: FDA-Public Use
  Company Number: US-GLAXOSMITHKLINE-US2018045560

PATIENT

DRUGS (3)
  1. FLONASE [Suspect]
     Active Substance: FLUTICASONE PROPIONATE
     Indication: SNEEZING
  2. FLONASE [Suspect]
     Active Substance: FLUTICASONE PROPIONATE
     Indication: MULTIPLE ALLERGIES
     Dosage: 1 DF, SINGLE
  3. FLONASE [Suspect]
     Active Substance: FLUTICASONE PROPIONATE
     Indication: RHINORRHOEA

REACTIONS (4)
  - Malaise [Unknown]
  - Retching [Unknown]
  - Migraine [Unknown]
  - Fatigue [Unknown]
